FAERS Safety Report 6765142-4 (Version None)
Quarter: 2010Q2

REPORT INFORMATION
  Report Type: 
  Country: None (occurrence: None)
  Receive Date: 20100609
  Receipt Date: 20100609
  Transmission Date: 20101027
  Serious: Yes (Other)
  Sender: FDA-Public Use
  Company Number: None

PATIENT
  Age: 31 Year
  Sex: Female
  Weight: 72.5755 kg

DRUGS (2)
  1. REGLAN [Suspect]
     Indication: HEADACHE
     Dosage: IV
     Route: 042
     Dates: start: 20100608, end: 20100608
  2. REGLAN [Suspect]
     Indication: NAUSEA
     Dosage: IV
     Route: 042
     Dates: start: 20100608, end: 20100608

REACTIONS (3)
  - DYSTONIA [None]
  - EPILEPSY [None]
  - GRAND MAL CONVULSION [None]
